FAERS Safety Report 9901891 (Version 2)
Quarter: 2014Q1

REPORT INFORMATION
  Report Type: Spontaneous
  Country: JP (occurrence: JP)
  Receive Date: 20140217
  Receipt Date: 20140313
  Transmission Date: 20141002
  Serious: Yes (Hospitalization)
  Sender: FDA-Public Use
  Company Number: JP-GLAXOSMITHKLINE-B0968869A

PATIENT
  Age: 61 Year
  Sex: Female

DRUGS (4)
  1. VALTREX [Suspect]
     Indication: HERPES ZOSTER
     Dosage: 1000MG THREE TIMES PER DAY
     Route: 048
     Dates: start: 20130115, end: 20130122
  2. TEGRETOL [Concomitant]
     Route: 048
     Dates: start: 20130115, end: 20130127
  3. METHYCOBAL [Concomitant]
     Route: 048
     Dates: start: 20130115, end: 20130122
  4. JUVELA N [Concomitant]
     Route: 048
     Dates: start: 20130115, end: 20130122

REACTIONS (2)
  - Neutropenia [Recovering/Resolving]
  - Thrombocytopenia [Recovering/Resolving]
